FAERS Safety Report 15101065 (Version 1)
Quarter: 2018Q3

REPORT INFORMATION
  Report Type: Spontaneous
  Country: US (occurrence: US)
  Receive Date: 20180703
  Receipt Date: 20180703
  Transmission Date: 20181010
  Serious: No
  Sender: FDA-Public Use
  Company Number: US-PFIZER INC-2018266168

PATIENT
  Sex: Female

DRUGS (1)
  1. DESVENLAFAXINE SUCCINATE MONOHYDRATE [Suspect]
     Active Substance: DESVENLAFAXINE SUCCINATE
     Dosage: 75 MG, UNK (50 MG + 25 MG = 75 MG)

REACTIONS (7)
  - Nervousness [Unknown]
  - Autoscopy [Unknown]
  - Dizziness [Unknown]
  - Drug ineffective [Unknown]
  - Headache [Unknown]
  - Nausea [Unknown]
  - Feeling abnormal [Unknown]
